FAERS Safety Report 25270335 (Version 1)
Quarter: 2025Q2

REPORT INFORMATION
  Report Type: Report from Study
  Country: US (occurrence: US)
  Receive Date: 20250505
  Receipt Date: 20250505
  Transmission Date: 20250716
  Serious: Yes (Other)
  Sender: BAYER HEALTHCARE PHARMACEUTICALS INC.
  Company Number: US-BAYER-2025A057436

PATIENT
  Sex: Male
  Weight: 113.38 kg

DRUGS (7)
  1. ADEMPAS [Suspect]
     Active Substance: RIOCIGUAT
     Indication: Pulmonary arterial hypertension
     Dates: start: 20250130
  2. ADEMPAS [Suspect]
     Active Substance: RIOCIGUAT
     Indication: Pulmonary arterial hypertension
     Dosage: 2.5 MG, TID
     Route: 048
  3. XARELTO [Concomitant]
     Active Substance: RIVAROXABAN
  4. LASIX [Concomitant]
     Active Substance: FUROSEMIDE
  5. VITAMIN D3 [Concomitant]
     Active Substance: CHOLECALCIFEROL
  6. ALBUTEROL SULFATE [Concomitant]
     Active Substance: ALBUTEROL SULFATE
  7. OXYGEN [Concomitant]
     Active Substance: OXYGEN

REACTIONS (5)
  - Panic attack [None]
  - Palpitations [None]
  - Blood pressure decreased [None]
  - Dizziness [None]
  - Adverse drug reaction [None]
